FAERS Safety Report 5349987-3 (Version None)
Quarter: 2007Q2

REPORT INFORMATION
  Report Type: 
  Country: None (occurrence: None)
  Receive Date: 20070607
  Receipt Date: 20070531
  Transmission Date: 20071010
  Serious: Yes (Other)
  Sender: FDA-Public Use
  Company Number: US-PFIZER INC-2007045780

PATIENT
  Sex: Female
  Weight: 125 kg

DRUGS (9)
  1. CHANTIX [Suspect]
     Indication: SMOKING CESSATION THERAPY
  2. ATENOLOL [Concomitant]
     Indication: BLOOD PRESSURE
  3. CYMBALTA [Concomitant]
  4. NEXIUM [Concomitant]
  5. LISINOPRIL [Concomitant]
  6. PREMARIN [Concomitant]
     Indication: HYSTERECTOMY
  7. LAMICTAL [Concomitant]
  8. LORAZEPAM [Concomitant]
     Indication: PANIC ATTACK
  9. LITHIUM CARBONATE [Concomitant]

REACTIONS (6)
  - ABNORMAL DREAMS [None]
  - AGITATION [None]
  - PANIC ATTACK [None]
  - PARAESTHESIA [None]
  - THYROID DISORDER [None]
  - TREMOR [None]
